FAERS Safety Report 6936404-2 (Version None)
Quarter: 2010Q3

REPORT INFORMATION
  Report Type: 
  Country: None (occurrence: None)
  Receive Date: 20100823
  Receipt Date: 20100809
  Transmission Date: 20110219
  Serious: No
  Sender: FDA-Public Use
  Company Number: US-B.I. PHARMACEUTICALS,INC./RIDGEFIELD-2009-BP-09502BP

PATIENT
  Sex: Female

DRUGS (8)
  1. SPIRIVA [Suspect]
     Indication: CHRONIC OBSTRUCTIVE PULMONARY DISEASE
     Dosage: 18 MCG
     Route: 055
     Dates: start: 20090201
  2. SPIRIVA [Suspect]
     Indication: ASTHMA
  3. SPIRIVA [Suspect]
     Indication: EMPHYSEMA
  4. TOPROL-XL [Concomitant]
     Indication: CARDIAC FAILURE CONGESTIVE
     Dates: start: 19930101
  5. LEVOTHYROXINE SODIUM [Concomitant]
     Indication: THYROID DISORDER
     Dates: start: 19930101
  6. ASPIRIN [Concomitant]
  7. OXYGEN [Concomitant]
  8. SYMBICORT [Concomitant]

REACTIONS (1)
  - DRUG INEFFECTIVE [None]
